FAERS Safety Report 5902931-X (Version None)
Quarter: 2008Q3

REPORT INFORMATION
  Report Type: 
  Country: None (occurrence: None)
  Receive Date: 20080930
  Receipt Date: 20080924
  Transmission Date: 20090109
  Serious: Yes (Death)
  Sender: FDA-Public Use
  Company Number: PHHO2008JP11261

PATIENT
  Sex: Male
  Weight: 39 kg

DRUGS (6)
  1. EXELON [Suspect]
     Indication: DEMENTIA ALZHEIMER'S TYPE
     Dosage: 2.5 UNK, UNK
     Route: 062
     Dates: start: 20080319, end: 20080416
  2. EXELON [Suspect]
     Dosage: 5 CM^2
     Route: 062
     Dates: start: 20080417, end: 20080507
  3. EXELON [Suspect]
     Dosage: 7.5 CM^2
     Route: 062
     Dates: start: 20080508, end: 20080611
  4. EXELON [Suspect]
     Dosage: 10 CM^2
     Route: 062
     Dates: start: 20080612
  5. BENZALIN [Concomitant]
     Dosage: UNK
     Dates: start: 20070725
  6. NICOTINELL TTS [Concomitant]
     Dosage: UNK
     Dates: start: 20080909

REACTIONS (1)
  - MYOCARDIAL INFARCTION [None]
